FAERS Safety Report 16153126 (Version 4)
Quarter: 2019Q3

REPORT INFORMATION
  Report Type: Spontaneous
  Country: US (occurrence: US)
  Receive Date: 20190403
  Receipt Date: 20190924
  Transmission Date: 20191004
  Serious: No
  Sender: FDA-Public Use
  Company Number: US-PFIZER INC-2019137395

PATIENT
  Age: 70 Year
  Sex: Male

DRUGS (1)
  1. METOPROLOL TARTRATE. [Suspect]
     Active Substance: METOPROLOL TARTRATE
     Indication: HYPERTENSION
     Dosage: UNK, 1X/DAY
     Dates: start: 201109, end: 2012

REACTIONS (4)
  - Photosensitivity reaction [Recovered/Resolved]
  - Muscle twitching [Recovered/Resolved]
  - Excessive eye blinking [Unknown]
  - Photophobia [Recovered/Resolved]

NARRATIVE: CASE EVENT DATE: 201109
